FAERS Safety Report 21176498 (Version 1)
Quarter: 2022Q3

REPORT INFORMATION
  Report Type: Spontaneous
  Country: US (occurrence: US)
  Receive Date: 20220805
  Receipt Date: 20220805
  Transmission Date: 20221027
  Serious: No
  Sender: FDA-Public Use
  Company Number: US-PFIZER INC-202201026166

PATIENT
  Age: 58 Year
  Sex: Female
  Weight: 58.51 kg

DRUGS (2)
  1. PAXLOVID [Suspect]
     Active Substance: NIRMATRELVIR\RITONAVIR
     Indication: COVID-19 treatment
     Dosage: UNK, 2X/DAY (300MG;100MG ORAL ONCE EVERY 12 HOURS)
     Route: 048
     Dates: start: 20220731, end: 20220731
  2. PAXLOVID [Suspect]
     Active Substance: NIRMATRELVIR\RITONAVIR
     Indication: Pyrexia

REACTIONS (6)
  - Disorientation [Recovering/Resolving]
  - Discomfort [Recovered/Resolved]
  - Dysgeusia [Recovered/Resolved]
  - Feeling abnormal [Recovered/Resolved]
  - Gait disturbance [Recovering/Resolving]
  - Abdominal discomfort [Recovered/Resolved]

NARRATIVE: CASE EVENT DATE: 20220731
